FAERS Safety Report 12961420 (Version 3)
Quarter: 2017Q1

REPORT INFORMATION
  Report Type: Other
  Country: FR (occurrence: FR)
  Receive Date: 20161121
  Receipt Date: 20170106
  Transmission Date: 20170428
  Serious: Yes (Other)
  Sender: FDA-Public Use
  Company Number: FR-VALIDUS PHARMACEUTICALS LLC-FR-2016VAL003003

PATIENT
  Age: 58 Year
  Sex: Female

DRUGS (14)
  1. NOREPINEPHRINE [Suspect]
     Active Substance: NOREPINEPHRINE\NOREPINEPHRINE BITARTRATE
     Indication: HYPOTENSION
     Dosage: UNK
     Route: 065
     Dates: start: 20161013, end: 20161019
  2. ROVAMYCINE                         /00074401/ [Suspect]
     Active Substance: SPIRAMYCIN
     Indication: LUNG DISORDER
     Dosage: 9 MILLION INTERNATIONAL UNITS;DAILY
     Route: 042
     Dates: start: 20161014, end: 20161020
  3. SOLU-MEDROL [Suspect]
     Active Substance: METHYLPREDNISOLONE SODIUM SUCCINATE
     Dosage: 1 G, QD
     Dates: start: 20161014, end: 20161016
  4. ENDOXAN                            /00021101/ [Concomitant]
     Active Substance: CYCLOPHOSPHAMIDE
     Indication: PRODUCT USED FOR UNKNOWN INDICATION
     Dosage: UNK
     Dates: start: 20161014, end: 20161014
  5. STROMECTOL [Suspect]
     Active Substance: IVERMECTIN
     Indication: PRODUCT USED FOR UNKNOWN INDICATION
     Dosage: 15 MILLIGRAM(S);ONCE
     Route: 048
     Dates: start: 20161016, end: 20161016
  6. NIMBEX [Suspect]
     Active Substance: CISATRACURIUM BESYLATE
     Indication: NEUROMUSCULAR BLOCKING THERAPY
     Dosage: UNK
     Route: 065
     Dates: start: 20161012, end: 20161016
  7. LEVOFLOXACIN. [Concomitant]
     Active Substance: LEVOFLOXACIN
     Indication: PRODUCT USED FOR UNKNOWN INDICATION
     Dosage: UNK
     Dates: start: 20161007, end: 20161014
  8. FUROSEMIDE. [Suspect]
     Active Substance: FUROSEMIDE
     Indication: PRODUCT USED FOR UNKNOWN INDICATION
     Dosage: UNK
     Route: 042
     Dates: start: 20161017, end: 20161020
  9. BACTRIM [Suspect]
     Active Substance: SULFAMETHOXAZOLE\TRIMETHOPRIM
     Indication: OPPORTUNISTIC INFECTION PROPHYLAXIS
     Dosage: 1 DOSAGE FORM;DAILY
     Route: 048
     Dates: start: 20161014, end: 20161020
  10. FENTANYL. [Suspect]
     Active Substance: FENTANYL
     Indication: SEDATION
     Dosage: UNK
     Route: 065
     Dates: start: 20161012, end: 20161018
  11. SOLU-MEDROL [Suspect]
     Active Substance: METHYLPREDNISOLONE SODIUM SUCCINATE
     Indication: ANTISYNTHETASE SYNDROME
     Dosage: 40 MG, UNK
     Dates: start: 20161012
  12. SOLU-MEDROL [Suspect]
     Active Substance: METHYLPREDNISOLONE SODIUM SUCCINATE
     Dosage: 70 MG, QD
     Dates: start: 20161017, end: 20161020
  13. CEFOTAXIME                         /00497602/ [Suspect]
     Active Substance: CEFOTAXIME SODIUM
     Indication: LUNG DISORDER
     Dosage: 6 GRAM(S);DAILY
     Route: 042
     Dates: start: 20161014, end: 20161020
  14. MIDAZOLAM [Suspect]
     Active Substance: MIDAZOLAM HYDROCHLORIDE
     Indication: SEDATION
     Dosage: UNK
     Route: 065
     Dates: start: 20161012, end: 20161018

REACTIONS (1)
  - Mixed liver injury [Recovering/Resolving]

NARRATIVE: CASE EVENT DATE: 20161018
